FAERS Safety Report 26110183 (Version 1)
Quarter: 2025Q4

REPORT INFORMATION
  Report Type: Spontaneous
  Country: CN (occurrence: CN)
  Receive Date: 20251202
  Receipt Date: 20251202
  Transmission Date: 20260117
  Serious: Yes (Other)
  Sender: BAXTER
  Company Number: None

PATIENT
  Age: 43 Year
  Sex: Female
  Weight: 62 kg

DRUGS (4)
  1. CYCLOPHOSPHAMIDE [Suspect]
     Active Substance: CYCLOPHOSPHAMIDE
     Indication: Breast cancer female
     Dosage: 1 G, QD (IVGTT D1)
     Route: 041
     Dates: start: 20251119, end: 20251119
  2. SODIUM CHLORIDE [Suspect]
     Active Substance: SODIUM CHLORIDE
     Indication: Medication dilution
     Dosage: 50 ML, QD (IVGTT D1) (CYCLOPHOSPHAMIDE WITH 0.9% SODIUM CHLORIDE)
     Route: 041
     Dates: start: 20251119, end: 20251119
  3. DEXTROSE [Suspect]
     Active Substance: DEXTROSE MONOHYDRATE
     Indication: Medication dilution
     Dosage: 500 ML, QD (IVGTT D1) (DOXORUBICIN HYDROCHLORIDE LIPOSOME WITH 5% GLUCOSE)
     Route: 041
     Dates: start: 20251119, end: 20251119
  4. DOXORUBICIN HYDROCHLORIDE [Suspect]
     Active Substance: DOXORUBICIN HYDROCHLORIDE
     Indication: Breast cancer female
     Dosage: 50 MG, QD (IVGTT D1) (PREPARED BY SELF)
     Route: 041
     Dates: start: 20251119, end: 20251119

REACTIONS (1)
  - Rash erythematous [Recovering/Resolving]

NARRATIVE: CASE EVENT DATE: 20251119
